FAERS Safety Report 24086611 (Version 1)
Quarter: 2024Q3

REPORT INFORMATION
  Report Type: Spontaneous
  Country: US (occurrence: US)
  Receive Date: 20240713
  Receipt Date: 20240713
  Transmission Date: 20241016
  Serious: No
  Sender: COSETTE PHARMACEUTICALS
  Company Number: US-COSETTE-CP2024US000152

PATIENT
  Age: 63 Year
  Sex: Female

DRUGS (2)
  1. VYLEESI [Suspect]
     Active Substance: BREMELANOTIDE ACETATE
     Indication: Product used for unknown indication
     Route: 065
  2. LISINOPRIL [Concomitant]
     Active Substance: LISINOPRIL
     Indication: Product used for unknown indication
     Route: 065

REACTIONS (1)
  - Drug ineffective [Unknown]
